FAERS Safety Report 9445790 (Version 4)
Quarter: 2013Q3

REPORT INFORMATION
  Report Type: Spontaneous
  Country: BR (occurrence: BR)
  Receive Date: 20130807
  Receipt Date: 20130920
  Transmission Date: 20140515
  Serious: Yes (Other)
  Sender: FDA-Public Use
  Company Number: PHHY2013BR083416

PATIENT
  Age: 58 Year
  Sex: Female
  Weight: 55 kg

DRUGS (3)
  1. ALENDRONATE SANDOZ [Suspect]
     Indication: OSTEOPOROSIS
     Dosage: 70 MG, QW
     Route: 048
  2. GLIFAGE [Concomitant]
  3. DIOVAN [Concomitant]

REACTIONS (8)
  - Joint effusion [Recovering/Resolving]
  - Abasia [Recovering/Resolving]
  - Arthralgia [Recovering/Resolving]
  - Skin discolouration [Recovering/Resolving]
  - Contusion [Recovering/Resolving]
  - Pain [Recovering/Resolving]
  - Pyrexia [Recovering/Resolving]
  - Diarrhoea [Recovering/Resolving]
